FAERS Safety Report 20447492 (Version 2)
Quarter: 2022Q1

REPORT INFORMATION
  Report Type: Spontaneous
  Country: JP (occurrence: JP)
  Receive Date: 20220209
  Receipt Date: 20220310
  Transmission Date: 20220423
  Serious: Yes (Life-Threatening, Hospitalization)
  Sender: FDA-Public Use
  Company Number: JP-ACS-002181

PATIENT
  Age: 83 Year
  Sex: Male
  Weight: 67.9 kg

DRUGS (3)
  1. CEFTRIAXONE [Suspect]
     Active Substance: CEFTRIAXONE
     Indication: Prophylaxis
     Dosage: 1G OF EACH ANTIBIOTIC WAS DISSOLVED IN 100ML SALINE
     Route: 042
     Dates: start: 20210115
  2. VANCOMYCIN [Suspect]
     Active Substance: VANCOMYCIN
     Indication: Prophylaxis
     Dosage: 1G OF EACH ANTIBIOTIC WAS DISSOLVED IN 100ML SALINE
     Route: 042
     Dates: start: 20210115
  3. SALINE [Concomitant]
     Active Substance: SODIUM CHLORIDE
     Dosage: 1G OF EACH EACH ANTIBIOTIC WAS DISSOLVED IN 100ML SALINE
     Route: 042

REACTIONS (1)
  - Pustular psoriasis [Recovered/Resolved]

NARRATIVE: CASE EVENT DATE: 20210126
